FAERS Safety Report 12990219 (Version 4)
Quarter: 2017Q2

REPORT INFORMATION
  Report Type: Report from Study
  Country: FR (occurrence: FR)
  Receive Date: 20161201
  Receipt Date: 20170426
  Transmission Date: 20170830
  Serious: Yes (Hospitalization)
  Sender: FDA-Public Use
  Company Number: FR-ROCHE-1861066

PATIENT
  Age: 50 Year
  Sex: Female
  Weight: 89 kg

DRUGS (3)
  1. COBIMETINIB [Suspect]
     Active Substance: COBIMETINIB
     Indication: METASTATIC MALIGNANT MELANOMA
     Dosage: CYCLE 2?DATE OF LAST ADMINISTRATION BEFORE SAE 25/NOV/2016
     Route: 048
     Dates: start: 20161008
  2. VEMURAFENIB [Suspect]
     Active Substance: VEMURAFENIB
     Indication: METASTATIC MALIGNANT MELANOMA
     Dosage: CYCLE 2?DATE OF LAST ADMINISTRATION BEFORE SAE 27/NOV/2016
     Route: 048
     Dates: start: 20161008
  3. VEMURAFENIB [Suspect]
     Active Substance: VEMURAFENIB
     Route: 048
     Dates: start: 20161106

REACTIONS (4)
  - Pyrexia [Unknown]
  - Small intestinal obstruction [Recovered/Resolved with Sequelae]
  - Vomiting [Unknown]
  - Fatigue [Unknown]

NARRATIVE: CASE EVENT DATE: 20161128
